FAERS Safety Report 10622982 (Version 1)
Quarter: 2014Q4

REPORT INFORMATION
  Report Type: Spontaneous
  Country: IT (occurrence: IT)
  Receive Date: 20141203
  Receipt Date: 20141203
  Transmission Date: 20150529
  Serious: Yes (Hospitalization)
  Sender: FDA-Public Use
  Company Number: IT-BAYER-2014-172888

PATIENT
  Age: 79 Year
  Sex: Female

DRUGS (7)
  1. CIPROXIN 500 MG FILM-COATED TABLETS [Suspect]
     Active Substance: CIPROFLOXACIN
     Dosage: 1 G, DAILY DOSE
     Route: 048
     Dates: start: 20141105, end: 20141119
  2. ROCEFIN [Suspect]
     Active Substance: CEFTRIAXONE SODIUM
     Dosage: DAILY DOSE 1 G
     Route: 042
     Dates: start: 20141105, end: 20141119
  3. PARIET [Concomitant]
     Active Substance: RABEPRAZOLE SODIUM
  4. DELTACORTENE [Concomitant]
     Active Substance: PREDNISONE
     Dosage: UNK
  5. LASIX [Concomitant]
     Active Substance: FUROSEMIDE
     Dosage: UNK
  6. TRITTICO [Concomitant]
     Active Substance: TRAZODONE HYDROCHLORIDE
  7. BENAZEPRIL HYDROCHLORIDE. [Concomitant]
     Active Substance: BENAZEPRIL HYDROCHLORIDE

REACTIONS (2)
  - Drug ineffective [Recovering/Resolving]
  - Pneumonia [Recovering/Resolving]

NARRATIVE: CASE EVENT DATE: 20141119
